FAERS Safety Report 8460432 (Version 3)
Quarter: 2012Q4

REPORT INFORMATION
  Report Type: 
  Country: US (occurrence: US)
  Receive Date: 20120315
  Receipt Date: 20121107
  Transmission Date: 20130627
  Serious: No
  Sender: FDA-Public Use
  Company Number: US-PFIZER INC-2012066510

PATIENT
  Age: 47 Year
  Sex: Female
  Weight: 71.7 kg

DRUGS (4)
  1. CHANTIX [Suspect]
     Indication: SMOKING CESSATION THERAPY
     Dosage: 0.5 mg, 2x/day
     Route: 048
     Dates: start: 20111109
  2. CHANTIX [Suspect]
     Indication: TOBACCO USER
     Dosage: 1 mg, 2x/day
     Route: 048
     Dates: end: 201202
  3. FISH OIL [Concomitant]
     Indication: NUTRITIONAL SUPPLEMENT
     Dosage: UNK
     Dates: start: 201106
  4. OVIDREL [Concomitant]
     Indication: OBESITY
     Dosage: UNK
     Dates: start: 201111

REACTIONS (5)
  - Drug ineffective [Unknown]
  - Feeling abnormal [Recovered/Resolved]
  - Abdominal discomfort [Recovered/Resolved]
  - Abdominal pain upper [Recovered/Resolved]
  - Dyspepsia [Recovered/Resolved]
